FAERS Safety Report 5485160-6 (Version None)
Quarter: 2007Q4

REPORT INFORMATION
  Report Type: 
  Country: None (occurrence: None)
  Receive Date: 20071015
  Receipt Date: 20071008
  Transmission Date: 20080405
  Serious: Yes (Other)
  Sender: FDA-Public Use
  Company Number: PHEH2007US13367

PATIENT
  Age: 66 Year
  Sex: Male
  Weight: 101.59 kg

DRUGS (6)
  1. ZOMETA [Suspect]
     Indication: MULTIPLE MYELOMA
  2. THALIDOMIDE [Concomitant]
     Dosage: 200 MG, UNK
  3. ALLOPURINOL [Concomitant]
     Dosage: 100 MG, UNK
  4. CELEBREX [Concomitant]
     Dosage: 200 MG, UNK
  5. ALLEGRA [Concomitant]
     Dosage: 60 MG, BID
  6. INTERFERON [Concomitant]

REACTIONS (13)
  - BLOOD PRODUCT TRANSFUSION [None]
  - BONE DISORDER [None]
  - GINGIVAL ULCERATION [None]
  - HALLUCINATION [None]
  - LOOSE TOOTH [None]
  - MENTAL STATUS CHANGES [None]
  - OSTEONECROSIS [None]
  - RENAL IMPAIRMENT [None]
  - SOFT TISSUE INFLAMMATION [None]
  - THROMBOTIC THROMBOCYTOPENIC PURPURA [None]
  - TOOTHACHE [None]
  - WOUND DEHISCENCE [None]
  - X-RAY ABNORMAL [None]
